FAERS Safety Report 8417886-6 (Version None)
Quarter: 2012Q2

REPORT INFORMATION
  Report Type: 
  Country: None (occurrence: None)
  Receive Date: 20120607
  Receipt Date: 20120601
  Transmission Date: 20120825
  Serious: Yes (Other)
  Sender: FDA-Public Use
  Company Number: US-PFIZER INC-2012133196

PATIENT

DRUGS (1)
  1. REVATIO [Suspect]
     Dosage: UNK
     Dates: start: 20111101

REACTIONS (1)
  - DEAFNESS [None]
